FAERS Safety Report 6864560-3 (Version None)
Quarter: 2010Q3

REPORT INFORMATION
  Report Type: 
  Country: None (occurrence: None)
  Receive Date: 20100721
  Receipt Date: 20080327
  Transmission Date: 20110219
  Serious: No
  Sender: FDA-Public Use
  Company Number: US-PFIZER INC-2008027985

PATIENT
  Sex: Female
  Weight: 46.818 kg

DRUGS (10)
  1. CHANTIX [Suspect]
     Indication: SMOKING CESSATION THERAPY
     Dates: start: 20080226
  2. ZETIA [Concomitant]
  3. LIPITOR [Concomitant]
  4. DETROL [Concomitant]
  5. EVISTA [Concomitant]
  6. CALCIUM [Concomitant]
  7. FISH OIL [Concomitant]
  8. VITAMIN C [Concomitant]
  9. MULTI-VITAMINS [Concomitant]
  10. LIPOIC ACID [Concomitant]

REACTIONS (2)
  - INSOMNIA [None]
  - TINNITUS [None]
